FAERS Safety Report 5833625-7 (Version None)
Quarter: 2008Q3

REPORT INFORMATION
  Report Type: 
  Country: None (occurrence: None)
  Receive Date: 20080805
  Receipt Date: 20080725
  Transmission Date: 20090109
  Serious: Yes (Life-Threatening, Hospitalization)
  Sender: FDA-Public Use
  Company Number: AU-ROCHE-495562

PATIENT
  Sex: Male

DRUGS (5)
  1. CAPECITABINE [Suspect]
     Dosage: FREQUENCY AS PER PROTOCOL: GIVEN IN 2 DIVIDED DOSES D1-14 Q3WEEKLY
     Route: 048
     Dates: start: 20051130
  2. CAPECITABINE [Suspect]
     Dosage: DOSE REDUCTION.
     Route: 048
     Dates: start: 20060517
  3. BEVACIZUMAB [Suspect]
     Dosage: FREQUENCY AS PER PROTOCOL.
     Route: 042
     Dates: start: 20051130, end: 20060607
  4. BEVACIZUMAB [Suspect]
     Route: 042
  5. MITOMYCIN [Suspect]
     Dosage: FREQUENCY AS PER PROTOCOL
     Route: 042
     Dates: start: 20051130

REACTIONS (1)
  - HAEMOLYTIC URAEMIC SYNDROME [None]
